FAERS Safety Report 4865419-3 (Version None)
Quarter: 2005Q4

REPORT INFORMATION
  Report Type: 
  Country: None (occurrence: None)
  Receive Date: 20051223
  Receipt Date: 20051216
  Transmission Date: 20060501
  Serious: Yes (Other)
  Sender: FDA-Public Use
  Company Number: US-AVENTIS-200520698US

PATIENT
  Sex: Male

DRUGS (9)
  1. LANTUS [Suspect]
     Indication: DIABETES MELLITUS NON-INSULIN-DEPENDENT
     Dosage: DOSE UNIT: UNITS
     Route: 058
     Dates: start: 20030715
  2. WELLBUTRIN [Concomitant]
     Dosage: DOSE: UNK
  3. GLYBURIDE [Concomitant]
     Dosage: DOSE: UNK
  4. AVANDIA [Concomitant]
     Dosage: DOSE: UNK
  5. ALTACE [Concomitant]
     Dosage: DOSE: UNK
  6. TOPROL-XL [Concomitant]
     Dosage: DOSE: UNK
  7. TRICOR [Concomitant]
     Dosage: DOSE: UNK
  8. FUROSEMIDE [Concomitant]
     Dosage: DOSE: UNK
  9. ASPIRIN [Concomitant]
     Dosage: DOSE: UNK

REACTIONS (3)
  - FATIGUE [None]
  - LYMPHOMA [None]
  - PAIN IN EXTREMITY [None]
